FAERS Safety Report 8274958-7 (Version None)
Quarter: 2012Q2

REPORT INFORMATION
  Report Type: 
  Country: None (occurrence: None)
  Receive Date: 20120411
  Receipt Date: 20120404
  Transmission Date: 20120825
  Serious: Yes (Hospitalization)
  Sender: FDA-Public Use
  Company Number: US-B.I. PHARMACEUTICALS,INC./RIDGEFIELD-2012-BP-06323BP

PATIENT
  Sex: Female

DRUGS (5)
  1. BYSTOLIC [Concomitant]
     Indication: CARDIAC DISORDER
     Dosage: 10 MG
     Route: 048
     Dates: start: 20100101
  2. SPIRIVA [Suspect]
     Indication: CHRONIC OBSTRUCTIVE PULMONARY DISEASE
     Dosage: 18 MCG
     Route: 055
     Dates: start: 20050101
  3. WARFARIN SODIUM [Concomitant]
     Indication: THROMBOSIS PROPHYLAXIS
     Route: 048
     Dates: start: 20050101
  4. LISINOPRIL [Concomitant]
     Indication: HYPERTENSION
     Dosage: 20 MG
  5. WARFARIN SODIUM [Concomitant]
     Route: 048
     Dates: start: 20050101

REACTIONS (7)
  - BLOOD CHOLESTEROL INCREASED [None]
  - GLAUCOMA [None]
  - RASH [None]
  - DEPRESSION [None]
  - DEVICE RELATED INFECTION [None]
  - GASTROOESOPHAGEAL REFLUX DISEASE [None]
  - ANXIETY [None]
